FAERS Safety Report 4555259-7 (Version None)
Quarter: 2005Q1

REPORT INFORMATION
  Report Type: 
  Country: None (occurrence: None)
  Receive Date: 20050118
  Receipt Date: 20050112
  Transmission Date: 20050727
  Serious: Yes (Life-Threatening, Disabling)
  Sender: FDA-Public Use
  Company Number: US-MERCK-0501USA01390

PATIENT
  Age: 58 Year
  Sex: Female

DRUGS (14)
  1. VYTORIN [Suspect]
     Indication: BLOOD CHOLESTEROL INCREASED
     Route: 048
     Dates: start: 20041220, end: 20050108
  2. ELAVIL [Concomitant]
     Route: 065
  3. PROZAC [Concomitant]
     Route: 065
  4. K-DUR 10 [Concomitant]
     Route: 065
  5. LASIX [Concomitant]
     Route: 065
  6. CALCIUM (UNSPECIFIED) [Concomitant]
     Route: 065
  7. DETROL [Concomitant]
     Route: 065
  8. DITROPAN [Concomitant]
     Route: 065
  9. COLACE [Concomitant]
     Route: 065
  10. PREMPRO [Concomitant]
     Route: 065
  11. CELEBREX [Concomitant]
     Route: 065
  12. ATACAND [Concomitant]
     Route: 065
  13. NORVASC [Concomitant]
     Route: 065
  14. TOPAMAX [Concomitant]
     Route: 065

REACTIONS (7)
  - BACK PAIN [None]
  - DIARRHOEA [None]
  - FEELING DRUNK [None]
  - FLATULENCE [None]
  - HALLUCINATION, VISUAL [None]
  - NAUSEA [None]
  - VERTIGO [None]
